FAERS Safety Report 15792323 (Version 1)
Quarter: 2019Q1

REPORT INFORMATION
  Report Type: Spontaneous
  Country: CA (occurrence: CA)
  Receive Date: 20190107
  Receipt Date: 20190107
  Transmission Date: 20190417
  Serious: Yes (Other)
  Sender: FDA-Public Use
  Company Number: CA-CONCORDIA PHARMACEUTICALS INC.-GSH201901-000026

PATIENT
  Sex: Female

DRUGS (8)
  1. HUMIRA [Concomitant]
     Active Substance: ADALIMUMAB
     Dates: start: 2017, end: 2017
  2. METHOTREXATE. [Concomitant]
     Active Substance: METHOTREXATE
  3. METOPROLOL. [Concomitant]
     Active Substance: METOPROLOL
  4. NAPROXEN. [Concomitant]
     Active Substance: NAPROXEN
  5. XELJANZ [Concomitant]
     Active Substance: TOFACITINIB CITRATE
  6. PLAQUENIL [Suspect]
     Active Substance: HYDROXYCHLOROQUINE SULFATE
     Route: 065
  7. AZATHIOPRINE. [Concomitant]
     Active Substance: AZATHIOPRINE
  8. SULFASALAZINE. [Concomitant]
     Active Substance: SULFASALAZINE

REACTIONS (2)
  - Rheumatoid arthritis [Unknown]
  - Drug ineffective [Unknown]
